FAERS Safety Report 9082352 (Version 1)
Quarter: 2013Q1

REPORT INFORMATION
  Report Type: Report from Study
  Country: US (occurrence: US)
  Receive Date: 20130130
  Receipt Date: 20130130
  Transmission Date: 20140127
  Serious: No
  Sender: FDA-Public Use
  Company Number: US-ABBOTT-12P-163-0961356-00

PATIENT
  Age: 69 Year
  Sex: Female

DRUGS (13)
  1. HUMIRA 40 MG/0.8 ML PEN [Suspect]
     Indication: CROHN^S DISEASE
     Dosage: LOADING DOSE ONLY
     Dates: start: 20120725
  2. HUMIRA 40 MG/0.8 ML PEN [Suspect]
     Dates: start: 20120725
  3. NADOLOL [Concomitant]
     Indication: HYPERTENSION
     Dosage: 10MG EVERY DAY
  4. LISINOPRIL [Concomitant]
     Indication: HYPERTENSION
     Dosage: 20MG EVERY DAY
  5. HYDROCHLOROTHIAZIDE [Concomitant]
     Indication: HYPERTENSION
     Dosage: 25MG EVERY DAY
  6. POTASSIUM [Concomitant]
     Indication: PRODUCT USED FOR UNKNOWN INDICATION
     Dosage: 1.5 TEASPOON EVERY DAY
  7. PLAQUENIL [Concomitant]
     Indication: SYSTEMIC LUPUS ERYTHEMATOSUS
     Dosage: 20MG EVERY DAY
  8. PREDNISONE [Concomitant]
     Indication: PRODUCT USED FOR UNKNOWN INDICATION
     Dosage: 10MG EVERY DAY TAPERING DOSE
  9. TRAMADOL [Concomitant]
     Indication: PRODUCT USED FOR UNKNOWN INDICATION
  10. PROTONICS [Concomitant]
     Indication: PRODUCT USED FOR UNKNOWN INDICATION
     Dosage: 20MG EVERY DAY
  11. MACROBID [Concomitant]
     Indication: CYSTITIS
     Dosage: AT BEDTIME
  12. MACROBID [Concomitant]
     Indication: URINARY TRACT INFECTION
  13. AMBIEN [Concomitant]
     Indication: INSOMNIA

REACTIONS (1)
  - Injection site pain [Recovered/Resolved]
